FAERS Safety Report 18769200 (Version 2)
Quarter: 2021Q1

REPORT INFORMATION
  Report Type: Report from Study
  Country: US (occurrence: US)
  Receive Date: 20210121
  Receipt Date: 20210129
  Transmission Date: 20210419
  Serious: Yes (Death)
  Sender: FDA-Public Use
  Company Number: US-UNITED THERAPEUTICS-UNT-2021-001148

PATIENT
  Age: 66 Year
  Sex: Female

DRUGS (2)
  1. TREPROSTINIL SODIUM (IV) [Suspect]
     Active Substance: TREPROSTINIL SODIUM
     Indication: PULMONARY ARTERIAL HYPERTENSION
     Dosage: 0.008 ?G/KG, CONTINUING
     Route: 041
  2. AMBRISENTAN [Concomitant]
     Active Substance: AMBRISENTAN
     Indication: PRODUCT USED FOR UNKNOWN INDICATION
     Dosage: UNK
     Route: 065

REACTIONS (1)
  - Death [Fatal]

NARRATIVE: CASE EVENT DATE: 20210119
